FAERS Safety Report 8046650-5 (Version None)
Quarter: 2012Q1

REPORT INFORMATION
  Report Type: 
  Country: None (occurrence: None)
  Receive Date: 20120114
  Receipt Date: 20120109
  Transmission Date: 20120608
  Serious: No
  Sender: FDA-Public Use
  Company Number: US-BAYER-2012-003340

PATIENT
  Age: 81 Year
  Sex: Female
  Weight: 87 kg

DRUGS (5)
  1. AMLODIPINE [Concomitant]
  2. MULTI-VITAMINS [Concomitant]
  3. ALEVE (CAPLET) [Suspect]
     Dosage: 1 TAB AS NEEDED
     Dates: start: 20110101, end: 20120108
  4. LISINOPRIL [Concomitant]
  5. METOPROLOL TARTRATE [Concomitant]

REACTIONS (1)
  - NO ADVERSE EVENT [None]
